FAERS Safety Report 14803173 (Version 1)
Quarter: 2018Q2

REPORT INFORMATION
  Report Type: Spontaneous
  Country: FR (occurrence: FR)
  Receive Date: 20180425
  Receipt Date: 20180425
  Transmission Date: 20180711
  Serious: Yes (Other)
  Sender: FDA-Public Use
  Company Number: FR-MERCK KGAA-2046425

PATIENT
  Age: 51 Year
  Sex: Female

DRUGS (1)
  1. NOVOTHYROX [Suspect]
     Active Substance: LEVOTHYROXINE SODIUM
     Indication: PRODUCT USED FOR UNKNOWN INDICATION

REACTIONS (21)
  - Chest pain [None]
  - Arthralgia [None]
  - Loss of libido [None]
  - Visual impairment [None]
  - Hot flush [None]
  - Myalgia [None]
  - Ill-defined disorder [None]
  - Social avoidant behaviour [None]
  - Mood swings [None]
  - Irritability [None]
  - Feeling abnormal [None]
  - Migraine [None]
  - Gamma-glutamyltransferase increased [None]
  - Weight increased [None]
  - Emotional distress [None]
  - Loss of personal independence in daily activities [None]
  - Somnolence [None]
  - Asthenia [None]
  - Hyperthyroidism [None]
  - Apathy [None]
  - Fatigue [None]

NARRATIVE: CASE EVENT DATE: 20170915
